FAERS Safety Report 24549786 (Version 3)
Quarter: 2025Q1

REPORT INFORMATION
  Report Type: Spontaneous
  Country: GB (occurrence: GB)
  Receive Date: 20241025
  Receipt Date: 20250114
  Transmission Date: 20250409
  Serious: No
  Sender: PFIZER
  Company Number: GB-PFIZER INC-PV202400136862

PATIENT
  Age: 8 Year
  Sex: Male

DRUGS (1)
  1. NGENLA [Suspect]
     Active Substance: SOMATROGON-GHLA
     Indication: Growth hormone deficiency
     Dosage: 18 MG, WEEKLY
     Route: 058

REACTIONS (3)
  - Injection site pain [Unknown]
  - Incorrect dose administered by device [Unknown]
  - Device use issue [Unknown]
